FAERS Safety Report 5887167-3 (Version None)
Quarter: 2008Q3

REPORT INFORMATION
  Report Type: 
  Country: None (occurrence: None)
  Receive Date: 20080917
  Receipt Date: 20080908
  Transmission Date: 20090109
  Serious: Yes (Hospitalization)
  Sender: FDA-Public Use
  Company Number: JP-PFIZER INC-2008075883

PATIENT
  Age: 86 Year
  Sex: Male

DRUGS (5)
  1. ALDACTONE [Suspect]
     Indication: DIURETIC THERAPY
     Dosage: DAILY DOSE:25MG
     Route: 049
     Dates: start: 20080825, end: 20080831
  2. ALDACTONE [Suspect]
     Indication: BLOOD PRESSURE MANAGEMENT
  3. DOXAZOSIN MESYLATE [Concomitant]
     Route: 049
  4. CAPTOPRIL [Concomitant]
     Route: 049
  5. CALBLOCK [Concomitant]
     Route: 049

REACTIONS (2)
  - HAEMORRHAGE [None]
  - PLATELET COUNT DECREASED [None]
